FAERS Safety Report 15643154 (Version 2)
Quarter: 2021Q4

REPORT INFORMATION
  Report Type: Spontaneous
  Country: US (occurrence: US)
  Receive Date: 20181121
  Receipt Date: 20211112
  Transmission Date: 20220303
  Serious: Yes (Disabling, Other)
  Sender: FDA-Public Use
  Company Number: US-TEVA-2018-US-977372

PATIENT
  Age: 51 Year
  Sex: Female
  Weight: 83.9 kg

DRUGS (23)
  1. DOCETAXEL [Suspect]
     Active Substance: DOCETAXEL
     Indication: Breast cancer metastatic
     Dosage: DOSE: 80 MG/4ML, 4 CYCLES WITH FREQUENCY EVERY 3 WEEKS
     Route: 042
     Dates: start: 20150616, end: 20151031
  2. DOCETAXEL [Suspect]
     Active Substance: DOCETAXEL
     Indication: Breast cancer metastatic
     Dosage: DOSE; 80 MG/8ML, 4 CYCLES WITH FREQUENCY EVERY 3 WEEKS
     Route: 042
     Dates: start: 20150616, end: 20151031
  3. DOCETAXEL [Suspect]
     Active Substance: DOCETAXEL
     Indication: Breast cancer metastatic
     Dosage: DOSE; 80 MG/4ML, 4 CYCLES WITH FREQUENCY EVERY 3 WEEKS
     Route: 042
     Dates: start: 20150616, end: 20151031
  4. DOCETAXEL [Suspect]
     Active Substance: DOCETAXEL
     Dosage: DOSE; 20 MG/ML, 4 CYCLES WITH FREQUENCY EVERY 3 WEEKS
     Route: 042
     Dates: start: 20150616, end: 20151031
  5. TRASTUZUMAB [Suspect]
     Active Substance: TRASTUZUMAB
     Indication: Breast cancer metastatic
     Dosage: DOSE: 2MG/KG
     Route: 042
  6. TRASTUZUMAB [Suspect]
     Active Substance: TRASTUZUMAB
     Indication: Metastases to bone
  7. PERJETA [Suspect]
     Active Substance: PERTUZUMAB
     Indication: Breast cancer metastatic
     Route: 065
  8. HEPARIN [Concomitant]
     Active Substance: HEPARIN SODIUM
     Dosage: DOSE: 500 UNITS, AS DIRECTED, PRN
     Route: 042
  9. CATHFLO ACTIVASE [Concomitant]
     Active Substance: ALTEPLASE
     Dosage: AS DIRECTED, PRN
     Route: 065
  10. CALCIUM [Concomitant]
     Active Substance: CALCIUM
     Dosage: DAILY
     Route: 048
  11. VITAMIN D NOS [Concomitant]
     Active Substance: VITAMIN D NOS
     Dosage: DAILY
     Route: 048
  12. IBUPROFEN [Concomitant]
     Active Substance: IBUPROFEN
     Indication: Pain
     Dosage: 2400 MILLIGRAM DAILY;
     Route: 048
  13. ZOMETA [Concomitant]
     Active Substance: ZOLEDRONIC ACID
     Indication: Breast cancer metastatic
     Dosage: DOSE: 4 MG/5 ML
     Route: 042
  14. ZOMETA [Concomitant]
     Active Substance: ZOLEDRONIC ACID
     Indication: Metastases to bone
  15. LUPRON [Concomitant]
     Active Substance: LEUPROLIDE ACETATE
     Indication: Metastases to bone
     Dosage: DOSE: 75 MG/MONTH
     Route: 030
     Dates: start: 2010, end: 201506
  16. LUPRON [Concomitant]
     Active Substance: LEUPROLIDE ACETATE
     Indication: Breast cancer metastatic
     Route: 065
     Dates: start: 2013
  17. HYDROCODONE [Concomitant]
     Active Substance: HYDROCODONE
     Indication: Back pain
     Route: 065
     Dates: start: 2012, end: 2017
  18. EXEMESTANE [Concomitant]
     Active Substance: EXEMESTANE
     Route: 065
     Dates: start: 2008
  19. LIDOCAINE [Concomitant]
     Active Substance: LIDOCAINE
     Route: 065
     Dates: start: 2008
  20. LATANOPROST [Concomitant]
     Active Substance: LATANOPROST
     Route: 065
     Dates: start: 2008
  21. FASLODEX [Concomitant]
     Active Substance: FULVESTRANT
     Route: 065
     Dates: start: 2008, end: 201506
  22. MOTRIN [Concomitant]
     Active Substance: IBUPROFEN
     Route: 065
     Dates: start: 2008
  23. TAMOXIFEN [Concomitant]
     Active Substance: TAMOXIFEN
     Route: 065
     Dates: start: 2005, end: 2010

REACTIONS (17)
  - Alopecia areata [Not Recovered/Not Resolved]
  - Madarosis [Not Recovered/Not Resolved]
  - Secondary immunodeficiency [Unknown]
  - Hair texture abnormal [Not Recovered/Not Resolved]
  - Hair colour changes [Not Recovered/Not Resolved]
  - Fatigue [Unknown]
  - Normocytic anaemia [Unknown]
  - Diarrhoea [Unknown]
  - Constipation [Unknown]
  - Arthralgia [Unknown]
  - Myalgia [Unknown]
  - Urticaria [Unknown]
  - Dizziness [Unknown]
  - Drug hypersensitivity [Unknown]
  - Temperature intolerance [Unknown]
  - Muscle spasms [Unknown]
  - Pruritus [Unknown]

NARRATIVE: CASE EVENT DATE: 20150101
